FAERS Safety Report 4432333-7 (Version None)
Quarter: 2004Q3

REPORT INFORMATION
  Report Type: 
  Country: None (occurrence: None)
  Receive Date: 20040820
  Receipt Date: 20040805
  Transmission Date: 20050211
  Serious: Yes (Hospitalization)
  Sender: FDA-Public Use
  Company Number: 04P-028-0269753-00

PATIENT
  Age: 84 Year
  Sex: Female

DRUGS (2)
  1. SYNTHROID [Suspect]
     Indication: HYPOTHYROIDISM
     Dosage: 12.5 MCG, 1 IN 1 D, PER ORAL
     Route: 048
     Dates: start: 20040614, end: 20040621
  2. QUINAPRIL HYDROCHLORIDE [Concomitant]

REACTIONS (2)
  - LUPUS VASCULITIS [None]
  - PURPURA [None]
